FAERS Safety Report 4570796-7 (Version None)
Quarter: 2005Q1

REPORT INFORMATION
  Report Type: 
  Country: None (occurrence: None)
  Receive Date: 20050202
  Receipt Date: 20050113
  Transmission Date: 20050727
  Serious: Yes (Hospitalization, Other)
  Sender: FDA-Public Use
  Company Number: EWC041241645

PATIENT
  Age: 41 Year
  Sex: Male
  Weight: 82 kg

DRUGS (14)
  1. XIGRIS [Suspect]
     Indication: MULTI-ORGAN FAILURE
     Dosage: 24 UG/KG/HR
     Dates: start: 20041123, end: 20041126
  2. XIGRIS [Suspect]
     Indication: SEPSIS
     Dosage: 24 UG/KG/HR
     Dates: start: 20041123, end: 20041126
  3. IMIPENEM [Concomitant]
  4. TEICOPLANIN [Concomitant]
  5. RANITIDINE [Concomitant]
  6. ACETAMINOPHEN [Concomitant]
  7. REMIFENTANIL [Concomitant]
  8. PROPOFOL [Concomitant]
  9. SUCRALFATE [Concomitant]
  10. HEPARIN [Concomitant]
  11. VITAMIN K [Concomitant]
  12. INYESPRIN [Concomitant]
  13. LABETALOL HCL [Concomitant]
  14. NORADRENALINE [Concomitant]

REACTIONS (10)
  - AREFLEXIA [None]
  - BASOPHILIA [None]
  - BRAIN SCAN ABNORMAL [None]
  - CEREBRAL DISORDER [None]
  - DEMYELINATION [None]
  - DEPRESSED LEVEL OF CONSCIOUSNESS [None]
  - GAZE PALSY [None]
  - HYPOTONIA [None]
  - STUPOR [None]
  - UPPER GASTROINTESTINAL HAEMORRHAGE [None]
